FAERS Safety Report 6234361-8 (Version None)
Quarter: 2009Q2

REPORT INFORMATION
  Report Type: 
  Country: None (occurrence: None)
  Receive Date: 20090615
  Receipt Date: 20090602
  Transmission Date: 20091009
  Serious: Yes (Other)
  Sender: FDA-Public Use
  Company Number: 2009-02239

PATIENT
  Age: 72 Year
  Sex: Female

DRUGS (3)
  1. VELCADE [Suspect]
     Indication: MULTIPLE MYELOMA
     Dosage: INTRAVENOUS
     Route: 042
     Dates: start: 20090204, end: 20090525
  2. DEXAMETHASONE [Concomitant]
  3. INSULIN (INSULIN) [Concomitant]

REACTIONS (3)
  - ALTERED STATE OF CONSCIOUSNESS [None]
  - HYPOGLYCAEMIA [None]
  - MUSCULAR WEAKNESS [None]
